FAERS Safety Report 8482916-2 (Version None)
Quarter: 2012Q2

REPORT INFORMATION
  Report Type: 
  Country: None (occurrence: None)
  Receive Date: 20120625
  Receipt Date: 20120612
  Transmission Date: 20120825
  Serious: Yes (Other)
  Sender: FDA-Public Use
  Company Number: 1320002

PATIENT
  Age: 30 Year
  Sex: Female

DRUGS (6)
  1. AZULFIDINE [Suspect]
     Indication: PRODUCT USED FOR UNKNOWN INDICATION
     Dosage: 1 G, 1 DAY, ORAL
     Route: 048
  2. DICLOFENAC SODIUM [Concomitant]
  3. FOLIC ACID [Concomitant]
  4. CIMZIA [Suspect]
     Indication: RHEUMATOID ARTHRITIS
     Dosage: 200 MG, SUBCUTANEOUS
     Route: 058
  5. PREDNISOLONE [Concomitant]
  6. METHOTREXATE [Suspect]
     Indication: PRODUCT USED FOR UNKNOWN INDICATION
     Dosage: 15 MG, 1 WEEK, SUBCUTANEOUS
     Route: 058

REACTIONS (1)
  - CELLULITIS [None]
